FAERS Safety Report 8335234-7 (Version None)
Quarter: 2012Q2

REPORT INFORMATION
  Report Type: 
  Country: None (occurrence: None)
  Receive Date: 20120503
  Receipt Date: 20120420
  Transmission Date: 20120825
  Serious: Yes (Hospitalization, Other)
  Sender: FDA-Public Use
  Company Number: US-MYLANLABS-2009AC000282

PATIENT
  Age: 77 Year
  Sex: Female

DRUGS (38)
  1. LEVAQUIN [Concomitant]
  2. BUSPAR [Concomitant]
  3. POTASSIUM CHLORIDE [Concomitant]
  4. LORTAB [Concomitant]
  5. DIOVAN [Concomitant]
  6. NITROFURANTOIN [Concomitant]
  7. BUSPIRONE HCL [Concomitant]
  8. COLTIN [Concomitant]
  9. DIGOXIN [Suspect]
     Route: 048
     Dates: start: 20070426, end: 20091208
  10. ZESTRIL [Concomitant]
  11. WARFARIN SODIUM [Concomitant]
  12. LASIX [Concomitant]
  13. PROPOX-N [Concomitant]
  14. NIASPAN [Concomitant]
  15. VALSARTAN/HYDROCHLOORTHIAZIDE [Concomitant]
  16. ACTOS [Concomitant]
  17. SYNTHROID [Concomitant]
  18. METOPROLOL TARTRATE [Concomitant]
  19. TRICOR [Concomitant]
  20. CEPHALEXIN [Concomitant]
  21. MAGNESIUM [Concomitant]
  22. LIDODERM [Concomitant]
  23. GEMFIBROZIL [Concomitant]
  24. LISINOPRIL [Concomitant]
  25. TOPROL-XL [Concomitant]
  26. DESYREL [Concomitant]
  27. CYCLOBENZAPRINE [Concomitant]
  28. TRAMADOL HCL [Concomitant]
  29. MAG-TAB [Concomitant]
  30. ALPRAZOLAM [Concomitant]
  31. MECLIZINE [Concomitant]
  32. HISTA-VENT DA [Concomitant]
  33. SULFAMETHOXAZOLE AND TRIMETHOPRIM [Concomitant]
  34. CEFUROXIME [Concomitant]
  35. MULTI-VITAMINS [Concomitant]
  36. KLOR-CON [Concomitant]
  37. PAROXETINE [Concomitant]
  38. LOPRESSOR [Concomitant]

REACTIONS (32)
  - ILL-DEFINED DISORDER [None]
  - ATRIAL FIBRILLATION [None]
  - SINUS BRADYCARDIA [None]
  - ABDOMINAL DISTENSION [None]
  - ECONOMIC PROBLEM [None]
  - FATIGUE [None]
  - HEART RATE IRREGULAR [None]
  - KYPHOSIS [None]
  - VOMITING [None]
  - BRADYCARDIA [None]
  - CARDIAC FAILURE CONGESTIVE [None]
  - CARDIOMEGALY [None]
  - DYSPNOEA [None]
  - CHEST PAIN [None]
  - INJURY [None]
  - HYPONATRAEMIA [None]
  - URINARY TRACT INFECTION [None]
  - LIVER FUNCTION TEST ABNORMAL [None]
  - HYPOVOLAEMIA [None]
  - ASTHENIA [None]
  - LEFT VENTRICULAR HYPERTROPHY [None]
  - ECHOCARDIOGRAM ABNORMAL [None]
  - HYPERTENSION [None]
  - ABDOMINAL PAIN [None]
  - DIZZINESS [None]
  - CARDIAC MURMUR [None]
  - NAUSEA [None]
  - TOXICITY TO VARIOUS AGENTS [None]
  - PYELONEPHRITIS [None]
  - DIABETES MELLITUS [None]
  - HYPOMAGNESAEMIA [None]
  - TACHYCARDIA [None]
